FAERS Safety Report 22083892 (Version 2)
Quarter: 2023Q1

REPORT INFORMATION
  Report Type: Spontaneous
  Country: US (occurrence: US)
  Receive Date: 20230310
  Receipt Date: 20230323
  Transmission Date: 20230417
  Serious: Yes (Hospitalization, Other)
  Sender: FDA-Public Use
  Company Number: US-009507513-2303USA002022

PATIENT
  Age: 85 Year
  Sex: Male

DRUGS (4)
  1. KEYTRUDA [Suspect]
     Active Substance: PEMBROLIZUMAB
     Indication: Bladder cancer
     Dosage: UNK UNK, Q3W
     Dates: start: 202202
  2. KEYTRUDA [Suspect]
     Active Substance: PEMBROLIZUMAB
     Dosage: UNK
     Dates: start: 202207, end: 202207
  3. KEYTRUDA [Suspect]
     Active Substance: PEMBROLIZUMAB
     Dosage: UNK
     Dates: start: 202211, end: 202211
  4. KEYTRUDA [Suspect]
     Active Substance: PEMBROLIZUMAB
     Dosage: UNK
     Dates: start: 202301, end: 202301

REACTIONS (14)
  - Bladder neoplasm [Unknown]
  - Cystitis [Unknown]
  - Urinary bladder haemorrhage [Unknown]
  - Hemiparesis [Unknown]
  - Muscle atrophy [Unknown]
  - Optic ischaemic neuropathy [Unknown]
  - Optic neuritis [Unknown]
  - Pain [Unknown]
  - Post procedural complication [Unknown]
  - Nerve injury [Unknown]
  - Arthritis [Unknown]
  - Anaemia [Unknown]
  - Memory impairment [Unknown]
  - Incorrect dose administered [Unknown]

NARRATIVE: CASE EVENT DATE: 20220101
